FAERS Safety Report 4421567-3 (Version None)
Quarter: 2004Q3

REPORT INFORMATION
  Report Type: 
  Country: None (occurrence: None)
  Receive Date: 20040804
  Receipt Date: 20040712
  Transmission Date: 20050211
  Serious: Yes (Hospitalization, Other)
  Sender: FDA-Public Use
  Company Number: USA030639412

PATIENT
  Age: 65 Year
  Sex: Female
  Weight: 59 kg

DRUGS (9)
  1. FORTEO [Suspect]
     Indication: OSTEOPOROSIS
     Dosage: 20 UG/DAY
     Dates: start: 20030602
  2. HUMALOG [Suspect]
     Indication: DIABETES MELLITUS
     Dates: start: 19980101
  3. NEXIUM [Concomitant]
  4. ZOLOFT [Concomitant]
  5. ZYRTEC [Concomitant]
  6. SYNTHROID [Concomitant]
  7. NEURONTIN [Concomitant]
  8. RHINOCORT [Concomitant]
  9. COMPAZINE [Concomitant]

REACTIONS (12)
  - BLOOD DISORDER [None]
  - BLOOD GLUCOSE DECREASED [None]
  - FEELING ABNORMAL [None]
  - GASTRIC INFECTION [None]
  - IRRITABILITY [None]
  - NAUSEA [None]
  - OSTEOPOROSIS [None]
  - PAIN [None]
  - PARAESTHESIA [None]
  - PHARMACEUTICAL PRODUCT COMPLAINT [None]
  - PYREXIA [None]
  - VOMITING [None]
